FAERS Safety Report 12583663 (Version 1)
Quarter: 2016Q3

REPORT INFORMATION
  Report Type: Spontaneous
  Country: US (occurrence: US)
  Receive Date: 20160722
  Receipt Date: 20160722
  Transmission Date: 20161109
  Serious: No
  Sender: FDA-Public Use
  Company Number: US-FRI-1000079666

PATIENT
  Age: 77 Year
  Sex: Male

DRUGS (7)
  1. NAMENDA XR [Suspect]
     Active Substance: MEMANTINE HYDROCHLORIDE
     Dosage: 28 MG
     Route: 048
     Dates: end: 201509
  2. NAMENDA [Suspect]
     Active Substance: MEMANTINE HYDROCHLORIDE
     Dosage: 10 MG
     Route: 048
     Dates: start: 201509, end: 201509
  3. NAMENDA [Suspect]
     Active Substance: MEMANTINE HYDROCHLORIDE
     Indication: COGNITIVE DISORDER
     Dosage: 20 MG
     Route: 048
     Dates: start: 201509, end: 201509
  4. NAMENDA XR [Suspect]
     Active Substance: MEMANTINE HYDROCHLORIDE
     Indication: COGNITIVE DISORDER
     Dosage: 7 MG
     Route: 048
     Dates: start: 201508
  5. NAMENDA XR [Suspect]
     Active Substance: MEMANTINE HYDROCHLORIDE
     Dosage: 14 MG
     Route: 048
  6. NAMENDA [Suspect]
     Active Substance: MEMANTINE HYDROCHLORIDE
     Dosage: 5 MG
     Route: 048
     Dates: start: 201509, end: 201509
  7. NAMENDA XR [Suspect]
     Active Substance: MEMANTINE HYDROCHLORIDE
     Dosage: 21 MG
     Route: 048

REACTIONS (5)
  - Activities of daily living impaired [Not Recovered/Not Resolved]
  - Aggression [Recovering/Resolving]
  - Off label use [Recovered/Resolved]
  - Memory impairment [Not Recovered/Not Resolved]
  - Aggression [Not Recovered/Not Resolved]

NARRATIVE: CASE EVENT DATE: 201508
